FAERS Safety Report 25194699 (Version 1)
Quarter: 2025Q2

REPORT INFORMATION
  Report Type: Spontaneous
  Country: PR (occurrence: PR)
  Receive Date: 20250414
  Receipt Date: 20250414
  Transmission Date: 20250717
  Serious: Yes (Life-Threatening, Hospitalization)
  Sender: MACLEODS
  Company Number: PR-MLMSERVICE-20250331-PI462177-00201-1

PATIENT

DRUGS (1)
  1. LIDOCAINE [Suspect]
     Active Substance: LIDOCAINE
     Indication: Local anaesthesia
     Route: 058

REACTIONS (3)
  - Status epilepticus [Recovered/Resolved]
  - Shock [Recovered/Resolved]
  - Local anaesthetic systemic toxicity [Recovered/Resolved]
